FAERS Safety Report 5403946-0 (Version None)
Quarter: 2007Q3

REPORT INFORMATION
  Report Type: 
  Country: None (occurrence: None)
  Receive Date: 20070802
  Receipt Date: 20070723
  Transmission Date: 20080115
  Serious: Yes (Hospitalization)
  Sender: FDA-Public Use
  Company Number: JP-ASTRAZENECA-2007AP04215

PATIENT
  Age: 22289 Day
  Sex: Female
  Weight: 56.8 kg

DRUGS (5)
  1. ARIMIDEX [Suspect]
     Indication: BREAST CANCER
     Route: 048
     Dates: start: 20060101
  2. RISEDRONATE SODIUM [Concomitant]
     Route: 048
     Dates: start: 20070701
  3. NORVASC [Concomitant]
     Route: 048
  4. LIVALO [Concomitant]
     Route: 048
  5. RIZE [Concomitant]
     Route: 048

REACTIONS (1)
  - PHOTOSENSITIVITY REACTION [None]
